FAERS Safety Report 17440958 (Version 3)
Quarter: 2020Q3

REPORT INFORMATION
  Report Type: Spontaneous
  Country: AR (occurrence: AR)
  Receive Date: 20200220
  Receipt Date: 20200909
  Transmission Date: 20201102
  Serious: Yes (Death, Hospitalization, Other)
  Sender: FDA-Public Use
  Company Number: AR-GILEAD-2020-0451824

PATIENT
  Sex: Male

DRUGS (1)
  1. AMBRISENTAN [Suspect]
     Active Substance: AMBRISENTAN
     Indication: PULMONARY ARTERIAL HYPERTENSION
     Dosage: UNK
     Route: 065
     Dates: start: 20141001, end: 20200201

REACTIONS (4)
  - Hepatic cirrhosis [Unknown]
  - Hepatitis C [Unknown]
  - Liver injury [Unknown]
  - Death [Fatal]
